FAERS Safety Report 12836641 (Version 1)
Quarter: 2016Q4

REPORT INFORMATION
  Report Type: Spontaneous
  Country: US (occurrence: US)
  Receive Date: 20161011
  Receipt Date: 20161011
  Transmission Date: 20170207
  Serious: Yes (Disabling)
  Sender: FDA-Public Use
  Company Number: None

PATIENT
  Age: 43 Year
  Sex: Female
  Weight: 65.77 kg

DRUGS (7)
  1. FLUCONAZOLE. [Suspect]
     Active Substance: FLUCONAZOLE
     Indication: FUNGAL INFECTION
     Dosage: 1 PILL EVERY 3 DAY 1 TIME EVERY 3 DAY
     Dates: start: 2015, end: 2016
  2. POTASSIUM [Concomitant]
     Active Substance: POTASSIUM
  3. IRON [Concomitant]
     Active Substance: IRON
  4. ATROVENT [Concomitant]
     Active Substance: IPRATROPIUM BROMIDE
  5. TRIAM HCTZ [Concomitant]
     Active Substance: HYDROCHLOROTHIAZIDE\TRIAMTERENE
  6. LEVOTHOXINE [Concomitant]
  7. ALBUTEROL. [Concomitant]
     Active Substance: ALBUTEROL

REACTIONS (7)
  - Rash [None]
  - Urinary tract infection [None]
  - Paraesthesia [None]
  - Blood iron decreased [None]
  - Abdominal discomfort [None]
  - Gastrointestinal disorder [None]
  - Blood potassium decreased [None]

NARRATIVE: CASE EVENT DATE: 201502
